FAERS Safety Report 8227066-5 (Version None)
Quarter: 2012Q1

REPORT INFORMATION
  Report Type: 
  Country: None (occurrence: None)
  Receive Date: 20120322
  Receipt Date: 20120322
  Transmission Date: 20120608
  Serious: No
  Sender: FDA-Public Use
  Company Number: US-PFIZER INC-2006018082

PATIENT
  Age: 52 Year
  Sex: Female

DRUGS (14)
  1. LYRICA [Suspect]
     Indication: HYPOAESTHESIA
  2. HYDROCHLOROTHIAZIDE [Concomitant]
     Route: 048
  3. LYRICA [Suspect]
     Indication: NEUROPATHY PERIPHERAL
     Dosage: 50 MG, 2X/DAY
     Route: 048
     Dates: start: 20051129
  4. PAXIL CR [Concomitant]
     Route: 048
  5. VALSARTAN [Concomitant]
     Route: 048
  6. BENADRYL [Concomitant]
     Route: 048
  7. ASPIRIN [Concomitant]
     Route: 048
  8. AMITRIPTYLINE HCL [Concomitant]
     Route: 048
  9. NOVOLOG [Concomitant]
     Route: 065
  10. ZOCOR [Concomitant]
     Route: 048
  11. CODEINE [Concomitant]
     Route: 048
  12. LANTUS [Concomitant]
     Route: 065
  13. ZANTAC [Concomitant]
     Route: 048
  14. FLEXERIL [Concomitant]
     Route: 048

REACTIONS (2)
  - DRUG INEFFECTIVE [None]
  - SWELLING FACE [None]
